FAERS Safety Report 7623958-6 (Version None)
Quarter: 2011Q3

REPORT INFORMATION
  Report Type: 
  Country: None (occurrence: None)
  Receive Date: 20110719
  Receipt Date: 20110719
  Transmission Date: 20111222
  Serious: No
  Sender: FDA-Public Use
  Company Number: None

PATIENT
  Age: 82 Year
  Sex: Male
  Weight: 79.8331 kg

DRUGS (5)
  1. VALSARTAN [Concomitant]
  2. NADOLOL [Concomitant]
  3. GLIPIZIDE [Concomitant]
  4. PLAVIX [Suspect]
     Indication: CORONARY ARTERY DISEASE
  5. ASPIRIN [Concomitant]

REACTIONS (1)
  - BLOOD GLUCOSE INCREASED [None]
